FAERS Safety Report 19964647 (Version 1)
Quarter: 2021Q4

REPORT INFORMATION
  Report Type: Spontaneous
  Country: DE (occurrence: JP)
  Receive Date: 20211018
  Receipt Date: 20211018
  Transmission Date: 20220303
  Serious: Yes (Other)
  Sender: FDA-Public Use
  Company Number: JP-MERCK HEALTHCARE KGAA-9270697

PATIENT
  Age: 66 Year
  Sex: Male

DRUGS (1)
  1. ERBITUX [Suspect]
     Active Substance: CETUXIMAB
     Indication: Hypopharyngeal cancer
     Dosage: -1 UNK, WEEKLY (1/W)
     Route: 041

REACTIONS (4)
  - Oesophageal stenosis [Unknown]
  - Oropharyngeal pain [Unknown]
  - Dysphagia [Unknown]
  - Mucosal inflammation [Unknown]
